FAERS Safety Report 17251268 (Version 1)
Quarter: 2020Q1

REPORT INFORMATION
  Report Type: Spontaneous
  Country: US (occurrence: US)
  Receive Date: 20200108
  Receipt Date: 20200108
  Transmission Date: 20200409
  Serious: Yes (Hospitalization)
  Sender: FDA-Public Use
  Company Number: None

PATIENT
  Sex: Female

DRUGS (5)
  1. ADVAIR HFA [Concomitant]
     Active Substance: FLUTICASONE PROPIONATE\SALMETEROL XINAFOATE
  2. ALBUTEROL. [Concomitant]
     Active Substance: ALBUTEROL
  3. ENOXAPARIN [Suspect]
     Active Substance: ENOXAPARIN
     Indication: PRODUCT USED FOR UNKNOWN INDICATION
     Route: 058
  4. VENTOLIN [Concomitant]
     Active Substance: ALBUTEROL SULFATE
  5. ENOXAPARIN [Suspect]
     Active Substance: ENOXAPARIN

REACTIONS (4)
  - Wrist fracture [None]
  - Road traffic accident [None]
  - Therapy cessation [None]
  - Rib fracture [None]
